FAERS Safety Report 23286747 (Version 1)
Quarter: 2023Q4

REPORT INFORMATION
  Report Type: Spontaneous
  Country: US (occurrence: None)
  Receive Date: 20231209
  Receipt Date: 20231209
  Transmission Date: 20240110
  Serious: Yes (unspecified)
  Sender: FDA-Public Use
  Company Number: None

PATIENT
  Age: 71 Year
  Sex: Female
  Weight: 49.95 kg

DRUGS (3)
  1. LEVOFLOXACIN [Suspect]
     Active Substance: LEVOFLOXACIN
     Indication: Sinusitis
     Dosage: 1 TABLET DAILY ORAL
     Route: 048
     Dates: start: 20230110, end: 20230111
  2. ROSUVASTATIN [Concomitant]
     Active Substance: ROSUVASTATIN
  3. TAMOXIFEN [Concomitant]
     Active Substance: TAMOXIFEN

REACTIONS (3)
  - Tenosynovitis [None]
  - Tendonitis [None]
  - Tenosynovitis [None]

NARRATIVE: CASE EVENT DATE: 20230110
